FAERS Safety Report 24874159 (Version 1)
Quarter: 2025Q1

REPORT INFORMATION
  Report Type: Spontaneous
  Country: AE (occurrence: None)
  Receive Date: 20250121
  Receipt Date: 20250121
  Transmission Date: 20250409
  Serious: Yes (Life-Threatening)
  Sender: FDA-CTU
  Company Number: None

PATIENT
  Age: 11 Year
  Sex: Male
  Weight: 45 kg

DRUGS (3)
  1. TRILEPTAL [Suspect]
     Active Substance: OXCARBAZEPINE
     Dates: start: 20220101, end: 20240101
  2. STRATTERA [Suspect]
     Active Substance: ATOMOXETINE HYDROCHLORIDE
  3. INTUNIV [Suspect]
     Active Substance: GUANFACINE HYDROCHLORIDE

REACTIONS (6)
  - Attention deficit hyperactivity disorder [None]
  - Condition aggravated [None]
  - Inappropriate affect [None]
  - Anger [None]
  - Suicidal ideation [None]
  - Abnormal behaviour [None]

NARRATIVE: CASE EVENT DATE: 20230715
